FAERS Safety Report 4966581-4 (Version None)
Quarter: 2006Q2

REPORT INFORMATION
  Report Type: 
  Country: None (occurrence: None)
  Receive Date: 20060407
  Receipt Date: 20060328
  Transmission Date: 20061013
  Serious: Yes (Disabling, Other)
  Sender: FDA-Public Use
  Company Number: JP-AVENTIS-200613152GDDC

PATIENT
  Age: 68 Year
  Sex: Female

DRUGS (1)
  1. RIFADIN [Suspect]
     Dosage: DOSE: UNK
     Route: 048
     Dates: start: 19990901, end: 20000601

REACTIONS (3)
  - ANAPHYLACTIC SHOCK [None]
  - MULTI-ORGAN FAILURE [None]
  - OPTIC NEUROPATHY [None]
